FAERS Safety Report 4311992-3 (Version None)
Quarter: 2004Q1

REPORT INFORMATION
  Report Type: 
  Country: None (occurrence: None)
  Receive Date: 20040305
  Receipt Date: 20030904
  Transmission Date: 20041129
  Serious: No
  Sender: FDA-Public Use
  Company Number: US-GLAXOSMITHKLINE-A0424560A

PATIENT
  Sex: Female

DRUGS (3)
  1. REQUIP [Suspect]
     Route: 048
  2. ALLERX [Suspect]
  3. DOXYCYCLINE [Suspect]

REACTIONS (5)
  - EAR DISORDER [None]
  - EAR INFECTION [None]
  - FACIAL PAIN [None]
  - PHARYNGITIS [None]
  - TOOTHACHE [None]
